FAERS Safety Report 13141145 (Version 4)
Quarter: 2017Q2

REPORT INFORMATION
  Report Type: Spontaneous
  Country: IN (occurrence: IN)
  Receive Date: 20170123
  Receipt Date: 20170509
  Transmission Date: 20170830
  Serious: Yes (Other)
  Sender: FDA-Public Use
  Company Number: IN-PFIZER INC-2017022992

PATIENT
  Age: 7 Year
  Sex: Male

DRUGS (9)
  1. VINCRISTINE [Concomitant]
     Active Substance: VINCRISTINE
     Indication: T-CELL TYPE ACUTE LEUKAEMIA
     Dosage: 1.5 MG/M2, UNK
     Route: 042
  2. MERCAPTOPURINE. [Concomitant]
     Active Substance: MERCAPTOPURINE
     Dosage: 25 MG/M2, DAILY
  3. FOLINIC ACID [Concomitant]
     Active Substance: LEUCOVORIN
     Dosage: 15 MG/M2, UNK
  4. PREDNISOLONE. [Concomitant]
     Active Substance: PREDNISOLONE
     Indication: T-CELL TYPE ACUTE LEUKAEMIA
     Dosage: 60 MG/M2, UNK
     Route: 048
  5. MERCAPTOPURINE. [Concomitant]
     Active Substance: MERCAPTOPURINE
     Indication: T-CELL TYPE ACUTE LEUKAEMIA
     Dosage: 60 MG/M2, DAILY FOR 3 WEEKS
     Route: 048
  6. TRIMETHOPRIM SULFAMETHOXAZOLE [Concomitant]
     Active Substance: SULFAMETHOXAZOLE\TRIMETHOPRIM
     Indication: PNEUMOCYSTIS JIROVECII INFECTION
     Dosage: UNK
     Route: 048
  7. DEXTROSE. [Concomitant]
     Active Substance: DEXTROSE
     Dosage: 5 %, UNK (240 ML)
  8. METHOTREXATE SODIUM. [Suspect]
     Active Substance: METHOTREXATE SODIUM
     Indication: T-CELL TYPE ACUTE LEUKAEMIA
     Dosage: 3250 MG, WEEKLY (5 G/M2)
  9. ASPARAGINASE [Concomitant]
     Active Substance: ASPARAGINASE
     Indication: T-CELL TYPE ACUTE LEUKAEMIA
     Dosage: 10,000 UNITS/M2, UNK
     Route: 030

REACTIONS (5)
  - Blister [Recovering/Resolving]
  - Stomatitis [Recovering/Resolving]
  - Dermatitis bullous [Recovering/Resolving]
  - Generalised erythema [Recovering/Resolving]
  - Toxicity to various agents [Recovering/Resolving]
